FAERS Safety Report 5567474-4 (Version None)
Quarter: 2007Q4

REPORT INFORMATION
  Report Type: 
  Country: None (occurrence: None)
  Receive Date: 20071219
  Receipt Date: 20071213
  Transmission Date: 20080405
  Serious: Yes (Hospitalization, Other)
  Sender: FDA-Public Use
  Company Number: US-MERCK-0705USA03628

PATIENT
  Age: 40 Year
  Sex: Female

DRUGS (3)
  1. FOSAMAX [Suspect]
     Indication: OSTEOPOROSIS
     Route: 048
     Dates: start: 19960401
  2. FOSAMAX [Suspect]
     Route: 048
     Dates: end: 20050916
  3. [THERAPY UNSPECIFIED] [Concomitant]
     Route: 065
     Dates: start: 19820101

REACTIONS (24)
  - ANTIPHOSPHOLIPID SYNDROME [None]
  - ANXIETY [None]
  - CEREBROVASCULAR ACCIDENT [None]
  - CONNECTIVE TISSUE DISORDER [None]
  - CRANIAL NERVE DISORDER [None]
  - DEEP VEIN THROMBOSIS [None]
  - FALL [None]
  - LEUKOPENIA [None]
  - MENINGITIS VIRAL [None]
  - MUSCULOSKELETAL PAIN [None]
  - OESOPHAGEAL CANDIDIASIS [None]
  - OPTIC NEURITIS [None]
  - OSTEOMYELITIS [None]
  - OSTEONECROSIS [None]
  - PRESYNCOPE [None]
  - RAYNAUD'S PHENOMENON [None]
  - RECTAL HAEMORRHAGE [None]
  - SICK SINUS SYNDROME [None]
  - SYSTEMIC LUPUS ERYTHEMATOSUS [None]
  - TEMPERATURE INTOLERANCE [None]
  - TEMPOROMANDIBULAR JOINT SYNDROME [None]
  - THYROID NEOPLASM [None]
  - TRANSIENT ISCHAEMIC ATTACK [None]
  - VIITH NERVE PARALYSIS [None]
